FAERS Safety Report 9988625 (Version 5)
Quarter: 2014Q2

REPORT INFORMATION
  Report Type: Report from Study
  Country: CN (occurrence: CN)
  Receive Date: 20140310
  Receipt Date: 20140626
  Transmission Date: 20141212
  Serious: Yes (Life-Threatening, Hospitalization, Other)
  Sender: FDA-Public Use
  Company Number: CN-ROCHE-1359258

PATIENT
  Age: 68 Year
  Sex: Male
  Weight: 49 kg

DRUGS (5)
  1. OBINUTUZUMAB [Suspect]
     Indication: DIFFUSE LARGE B-CELL LYMPHOMA
     Dosage: VOLUME OF LAST GA101 TAKEN 250ML?DOSE CONCENTRATION OF LAST GA101 TAKEN 4MG/ML?DATE OF MOST RECENT D
     Route: 042
     Dates: start: 20131129
  2. CYCLOPHOSPHAMIDE [Suspect]
     Indication: DIFFUSE LARGE B-CELL LYMPHOMA
     Dosage: DATE OF MOST RECENT DOSE OF CYCLOPHOSPHAMIDE PRIOR TO AE ONSET 19 FEB 2014?DOSE OF LAST CYCLOPHOSPHA
     Route: 042
     Dates: start: 20131130
  3. DOXORUBICIN [Suspect]
     Indication: DIFFUSE LARGE B-CELL LYMPHOMA
     Dosage: DATE OF MOST RECENT DOSE OF DOXORUBICIN PRIOR TO AE ONSET 19/FEB/ 2014?DOSE OF LAST DOXORUBICIN TAKE
     Route: 042
     Dates: start: 20131130
  4. VINCRISTINE [Suspect]
     Indication: DIFFUSE LARGE B-CELL LYMPHOMA
     Dosage: DATE OF MOST RECENT DOSE OF VINCRISTINE PRIOR TO AE ONSET 19 FEB 2014?DOSE OF LAST VINCRISTINE TAKEN
     Route: 040
     Dates: start: 20131130
  5. PREDNISONE [Suspect]
     Indication: DIFFUSE LARGE B-CELL LYMPHOMA
     Dosage: DOSE OF LAST PREDNISONE 100MG?MOST RECENT DOSE PRIOR TO SAE 23/FEB/2014
     Route: 048
     Dates: start: 20131130

REACTIONS (4)
  - Cardiac failure [Recovering/Resolving]
  - Leukopenia [Recovered/Resolved]
  - Renal impairment [Recovering/Resolving]
  - Lung infection [Recovering/Resolving]
